FAERS Safety Report 12196584 (Version 1)
Quarter: 2016Q1

REPORT INFORMATION
  Report Type: Spontaneous
  Country: CH (occurrence: CH)
  Receive Date: 20160321
  Receipt Date: 20160321
  Transmission Date: 20160526
  Serious: Yes (Hospitalization)
  Sender: FDA-Public Use
  Company Number: PHHY2016CH036622

PATIENT
  Age: 59 Year
  Sex: Male

DRUGS (5)
  1. ORFIRIL [Suspect]
     Active Substance: VALPROIC ACID
     Indication: EPILEPSY
     Dosage: 500 MG, BID
     Route: 048
     Dates: start: 20160107, end: 20160127
  2. XANAX [Suspect]
     Active Substance: ALPRAZOLAM
     Indication: AGITATION
     Dosage: 1 MG, TID
     Route: 048
     Dates: start: 20160112, end: 20160227
  3. TEMESTA [Suspect]
     Active Substance: LORAZEPAM
     Indication: AGITATION
     Dosage: 3 MG, QD
     Route: 048
     Dates: start: 20151217, end: 20160127
  4. HALDOL [Suspect]
     Active Substance: HALOPERIDOL
     Indication: AGITATION
     Dosage: 0.5 MG, QD
     Route: 040
     Dates: start: 20151217, end: 20160215
  5. TEGRETOL [Suspect]
     Active Substance: CARBAMAZEPINE
     Indication: EPILEPSY
     Dosage: 100 MG, BID
     Route: 048
     Dates: start: 20151217, end: 20160127

REACTIONS (1)
  - Altered state of consciousness [Recovered/Resolved]

NARRATIVE: CASE EVENT DATE: 20160127
